FAERS Safety Report 16098787 (Version 1)
Quarter: 2019Q1

REPORT INFORMATION
  Report Type: Spontaneous
  Country: US (occurrence: US)
  Receive Date: 20190321
  Receipt Date: 20190321
  Transmission Date: 20190418
  Serious: Yes (Other)
  Sender: FDA-Public Use
  Company Number: PHEH2019US011896

PATIENT

DRUGS (1)
  1. KYMRIAH [Suspect]
     Active Substance: TISAGENLECLEUCEL
     Indication: DIFFUSE LARGE B-CELL LYMPHOMA
     Dosage: UNK
     Route: 065
     Dates: start: 201902

REACTIONS (5)
  - Diffuse large B-cell lymphoma [Unknown]
  - Skin mass [Unknown]
  - Nodular rash [Unknown]
  - Rash [Unknown]
  - Malignant neoplasm progression [Unknown]
